FAERS Safety Report 21164589 (Version 1)
Quarter: 2022Q3

REPORT INFORMATION
  Report Type: Spontaneous
  Country: ZA (occurrence: ZA)
  Receive Date: 20220803
  Receipt Date: 20220803
  Transmission Date: 20221027
  Serious: Yes (Death)
  Sender: FDA-Public Use
  Company Number: ZA-SERVIER-S22007873

PATIENT
  Age: 58 Year
  Sex: Male

DRUGS (7)
  1. IVABRADINE [Suspect]
     Active Substance: IVABRADINE
     Indication: Cardiac disorder
     Dosage: 1 DOSAGE FORM, QD
     Route: 048
     Dates: end: 202207
  2. GLICLAZIDE [Concomitant]
     Active Substance: GLICLAZIDE
     Indication: Diabetes mellitus
     Dosage: 1 DF, QD
     Route: 048
  3. Betacor [Concomitant]
     Indication: Hypertension
     Dosage: 5 MILLIGRAM, QD
     Route: 048
  4. RAN PERINDOPRIL [Concomitant]
     Indication: Hypertension
     Dosage: 4 MILLIGRAM, QD
     Route: 048
  5. ROSUVASTATIN CALCIUM [Concomitant]
     Active Substance: ROSUVASTATIN CALCIUM
     Indication: Blood cholesterol abnormal
     Dosage: 40 MILLIGRAM, QD
     Route: 048
  6. ASPIRIN\CLOPIDOGREL BISULFATE [Concomitant]
     Active Substance: ASPIRIN\CLOPIDOGREL BISULFATE
     Indication: Platelet aggregation inhibition
     Dosage: UNK
     Route: 048
  7. DAPAGLIFLOZIN [Concomitant]
     Active Substance: DAPAGLIFLOZIN
     Indication: Diabetes mellitus
     Dosage: 10 DOSAGE FORM, QD
     Route: 048

REACTIONS (1)
  - Myocardial infarction [Fatal]

NARRATIVE: CASE EVENT DATE: 20220101
